FAERS Safety Report 17293554 (Version 6)
Quarter: 2021Q2

REPORT INFORMATION
  Report Type: Spontaneous
  Country: DE (occurrence: DE)
  Receive Date: 20200121
  Receipt Date: 20210610
  Transmission Date: 20210716
  Serious: Yes (Death, Hospitalization, Other)
  Sender: FDA-Public Use
  Company Number: NVSC2020DE013801

PATIENT
  Age: 55 Year
  Sex: Female

DRUGS (44)
  1. CARBOPLATIN. [Suspect]
     Active Substance: CARBOPLATIN
     Dosage: 1 UNK, Q3W (FIRST?LINE THERAPY; AUC5, ON DAY1, EVERY 3 WEEKS; SECOND CYCLE)
     Route: 065
     Dates: start: 20190523, end: 20190523
  2. NINTEDANIB [Suspect]
     Active Substance: NINTEDANIB
     Dosage: UNK (10?12TH CYCLE)
     Route: 065
     Dates: start: 20200326, end: 20200507
  3. VARGATEF [Suspect]
     Active Substance: NINTEDANIB
     Dosage: 100 MG (100MG, TWO, TWICE DAILY ORAL FROM DAY 2 UNTIL DAY 21, EVERY 3 WEEKS; SECOND CYCLE)
     Route: 048
     Dates: start: 20191007, end: 20191007
  4. DOCETAXEL. [Suspect]
     Active Substance: DOCETAXEL
     Dosage: 4?6TH CYCLE
     Route: 065
     Dates: start: 20191119, end: 20200102
  5. DOCETAXEL. [Suspect]
     Active Substance: DOCETAXEL
     Dosage: UNK (7?9TH CYCLE)
     Route: 065
     Dates: start: 20200123, end: 20200305
  6. DOCETAXEL. [Suspect]
     Active Substance: DOCETAXEL
     Dosage: 60 MG/M2, TIW (10?12 TH CYCLE)
     Route: 042
     Dates: start: 20200326, end: 20200507
  7. PEMBROLIZUMAB. [Suspect]
     Active Substance: PEMBROLIZUMAB
     Dosage: 200 MG, Q3W (SECOND CYCLE)
     Route: 065
     Dates: start: 20190523, end: 20190523
  8. PEMBROLIZUMAB. [Suspect]
     Active Substance: PEMBROLIZUMAB
     Dosage: 200 MG, Q3W (SIXTH CYCLE)
     Route: 065
     Dates: start: 20190822, end: 20190822
  9. CARBOPLATIN. [Suspect]
     Active Substance: CARBOPLATIN
     Dosage: 1 UNK, Q3W (FIRST?LINE THERAPY; AUC5, ON DAY1, EVERY 3 WEEKS; THIRD CYCLE)
     Route: 065
     Dates: start: 20190613, end: 20190613
  10. CARBOPLATIN. [Suspect]
     Active Substance: CARBOPLATIN
     Dosage: 1 UNK, Q3W (FIRST?LINE THERAPY; AUC5, ON DAY1, EVERY 3 WEEKS; SIXTH CYCLE)
     Route: 065
     Dates: start: 20190822, end: 20190822
  11. VARGATEF [Suspect]
     Active Substance: NINTEDANIB
     Indication: NON-SMALL CELL LUNG CANCER METASTATIC
     Dosage: 200 MG, QD, 100MG, TWO, TWICE DAILY ORAL FROM DAY 2 UNTIL DAY 21, EVERY 3 WEEKS;FIRST CYCLE
     Route: 048
     Dates: end: 20190912
  12. PEMETREXED DISODIUM [Suspect]
     Active Substance: PEMETREXED DISODIUM
     Dosage: 500 MG/M2, Q3W (500 MILLIGRAM/SQ. METEREVERY 3 WEEKS ;SECOND?LINE THERAPY; THIRD CYCLE)
     Route: 065
     Dates: start: 20190613, end: 20190613
  13. NINTEDANIB [Suspect]
     Active Substance: NINTEDANIB
     Dosage: 100 MG (TWO, TWICE DAILY ORAL FROM DAY 2 UNTIL DAY 21, EVERY 3 WEEKS; THIRD CYCLE)
     Route: 048
     Dates: start: 20191028, end: 20191028
  14. DOCETAXEL. [Suspect]
     Active Substance: DOCETAXEL
     Dosage: UNK (SECOND?LINE THERAPY)
     Route: 065
     Dates: start: 20190912, end: 20191007
  15. PEMBROLIZUMAB. [Suspect]
     Active Substance: PEMBROLIZUMAB
     Dosage: 200 MG, Q3W (FIFTH CYCLE)
     Route: 065
     Dates: start: 20190725, end: 20190725
  16. NINTEDANIB [Suspect]
     Active Substance: NINTEDANIB
     Dosage: 100 MG (TWO, TWICE DAILY ORAL FROM DAY 2 UNTIL DAY 21, EVERY 3 WEEKS;FIRST CYCLE)
     Route: 048
     Dates: start: 20190912, end: 20190912
  17. DOCETAXEL. [Suspect]
     Active Substance: DOCETAXEL
     Dosage: 75 MG/M2, Q3W (75 MG/M2, (FIRST CYCLE))
     Route: 065
     Dates: end: 20190912
  18. DOCETAXEL. [Suspect]
     Active Substance: DOCETAXEL
     Dosage: 75 MG/M2, Q3W (75 MG/M2, (SECOND CYCLE))
     Route: 065
     Dates: start: 20191007, end: 20191007
  19. PEMBROLIZUMAB. [Suspect]
     Active Substance: PEMBROLIZUMAB
     Dosage: 200 MG, Q3W (THIRD CYCLE)
     Route: 065
     Dates: start: 20190613, end: 20190613
  20. PEMBROLIZUMAB. [Suspect]
     Active Substance: PEMBROLIZUMAB
     Dosage: 200 MG, Q3W (FORTH CYCLE)
     Route: 065
     Dates: start: 20190704, end: 20190704
  21. CARBOPLATIN. [Suspect]
     Active Substance: CARBOPLATIN
     Indication: LUNG NEOPLASM MALIGNANT
     Dosage: 1 UNK, Q3W (FIRST?LINE THERAPY; AUC5, ON DAY1, EVERY 3 WEEKS; FIRST CYCLE)
     Route: 065
     Dates: end: 20190502
  22. CARBOPLATIN. [Suspect]
     Active Substance: CARBOPLATIN
     Dosage: 1UNK, Q3W (FIRST?LINE THERAPY; AUC5, ON DAY1, EVERY 3 WEEKS; FIFTH CYCLE)
     Route: 065
     Dates: start: 20190725, end: 20190725
  23. NINTEDANIB [Suspect]
     Active Substance: NINTEDANIB
     Dosage: UNK (7?9TH CYCLE)
     Route: 065
     Dates: start: 20200123, end: 20200305
  24. VARGATEF [Suspect]
     Active Substance: NINTEDANIB
     Dosage: UNK (4?6TH CYCLE)
     Route: 065
     Dates: start: 20191119, end: 20200102
  25. PEMETREXED DISODIUM [Suspect]
     Active Substance: PEMETREXED DISODIUM
     Indication: NON-SMALL CELL LUNG CANCER METASTATIC
     Dosage: UNK (FIRST?LINE THERAPY)
     Route: 065
  26. PEMETREXED DISODIUM [Suspect]
     Active Substance: PEMETREXED DISODIUM
     Dosage: 500 MG/M2, Q3W (500 MILLIGRAM/SQ. METEREVERY 3 WEEKS ;2 CYCLES, SECOND?LINE THERAP; SIXTH CYCLE)
     Route: 065
     Dates: start: 20190822, end: 20190822
  27. PEMBROLIZUMAB. [Suspect]
     Active Substance: PEMBROLIZUMAB
     Dosage: 200 MG, TIW (FIRST CYCLE)
     Route: 065
     Dates: start: 20190502, end: 20190502
  28. VARGATEF [Suspect]
     Active Substance: NINTEDANIB
     Dosage: 100 MG (TWO, TWICE DAILY ORAL FROM DAY 2 UNTIL DAY 21, EVERY 3 WEEKS; THIRD CYCLE))
     Route: 048
     Dates: start: 20191028, end: 20191028
  29. VARGATEF [Suspect]
     Active Substance: NINTEDANIB
     Dosage: 13TH CYCLE
     Route: 065
     Dates: start: 20200526, end: 20200526
  30. PEMETREXED DISODIUM [Suspect]
     Active Substance: PEMETREXED DISODIUM
     Dosage: 500 MG/M2, Q3W (500 MILLIGRAM/SQ. METEREVERY 3 WEEKS ;SECOND?LINE THERAP; FIRST CYCLE)
     Route: 065
     Dates: start: 20190502
  31. PEMETREXED DISODIUM [Suspect]
     Active Substance: PEMETREXED DISODIUM
     Dosage: 500 MG/M2, Q3W (500 MILLIGRAM/SQ. METEREVERY 3 WEEKS ;2 CYCLES, SECOND?LINE THERAP; FORTH CYCLE)
     Route: 065
     Dates: start: 20190704, end: 20190704
  32. PEMETREXED DISODIUM [Suspect]
     Active Substance: PEMETREXED DISODIUM
     Dosage: 500 MG/M2, Q3W(500 MILLIGRAM/SQ. METEREVERY 3 WEEKS ;2 CYCLES, SECOND?LINE THERAP; FIFTH CYCLE)
     Route: 065
     Dates: start: 20190725, end: 20190725
  33. DOCETAXEL. [Suspect]
     Active Substance: DOCETAXEL
     Indication: LUNG NEOPLASM MALIGNANT
     Dosage: UNK (2 CYCLES, SECOND?LINE THERAPY   )
     Route: 065
     Dates: end: 20180213
  34. DOCETAXEL. [Suspect]
     Active Substance: DOCETAXEL
     Dosage: 75MG/M2, D1, EVERY 3 WEEKS; THIRD CYCLE
     Route: 065
     Dates: start: 20191028, end: 20191028
  35. NINTEDANIB [Suspect]
     Active Substance: NINTEDANIB
     Indication: LUNG NEOPLASM MALIGNANT
     Dosage: UNK (2 CYCLES, SECOND?LINE THERAPY)
     Route: 065
     Dates: end: 20180213
  36. NINTEDANIB [Suspect]
     Active Substance: NINTEDANIB
     Dosage: UNK (SECOND?LINE THERAPY   )
     Route: 048
     Dates: start: 20190912, end: 20191007
  37. NINTEDANIB [Suspect]
     Active Substance: NINTEDANIB
     Dosage: 75 MG/M2, Q3W (SECOND CYCLE)
     Route: 048
     Dates: start: 20191007, end: 20191007
  38. NINTEDANIB [Suspect]
     Active Substance: NINTEDANIB
     Dosage: UNK (4?6TH CYCLE)
     Route: 065
     Dates: start: 20191119, end: 20200102
  39. NINTEDANIB [Suspect]
     Active Substance: NINTEDANIB
     Dosage: UNK (13TH CYCLE)
     Route: 065
     Dates: start: 20200526, end: 20200526
  40. DOCETAXEL. [Suspect]
     Active Substance: DOCETAXEL
     Dosage: 13TH CYCLE
     Route: 065
     Dates: start: 20200526, end: 20200526
  41. PEMBROLIZUMAB. [Suspect]
     Active Substance: PEMBROLIZUMAB
     Indication: LUNG NEOPLASM MALIGNANT
     Dosage: UNK (FIRST?LINE THERAPY)
     Route: 065
  42. CARBOPLATIN. [Suspect]
     Active Substance: CARBOPLATIN
     Dosage: UNK, Q3W (FIRST?LINE THERAPY; AUC5, ON DAY1, EVERY 3 WEEKS; FORTH CYCLE)
     Route: 065
     Dates: start: 20190704, end: 20190704
  43. VARGATEF [Suspect]
     Active Substance: NINTEDANIB
     Dosage: 400 MG, QD (100MG, TWO, TWICE DAILY ORAL FROM DAY 2 UNTIL DAY 21, EVERY 3 WEEKS)
     Route: 048
     Dates: start: 20200326, end: 20200507
  44. PEMETREXED DISODIUM [Suspect]
     Active Substance: PEMETREXED DISODIUM
     Dosage: 500 MG/M2, Q3W (500 MILLIGRAM/SQ. METEREVERY 3 WEEKS ;SECOND?LINE THERAP; SECOND CYCLE)
     Route: 065
     Dates: start: 20190523, end: 20190523

REACTIONS (12)
  - Neuropathy peripheral [Unknown]
  - Neutropenia [Unknown]
  - Malignant neoplasm progression [Fatal]
  - Pneumonitis [Unknown]
  - Diarrhoea [Unknown]
  - Diarrhoea [Unknown]
  - Febrile neutropenia [Unknown]
  - Nausea [Unknown]
  - Malignant neoplasm progression [Unknown]
  - Inappropriate schedule of product administration [Unknown]
  - Malignant neoplasm progression [Unknown]
  - Venous thrombosis [Recovering/Resolving]

NARRATIVE: CASE EVENT DATE: 2018
